FAERS Safety Report 19284154 (Version 1)
Quarter: 2021Q2

REPORT INFORMATION
  Report Type: Spontaneous
  Country: US (occurrence: US)
  Receive Date: 20210521
  Receipt Date: 20210521
  Transmission Date: 20210717
  Serious: No
  Sender: FDA-Public Use
  Company Number: US-SA-2021SA166818

PATIENT
  Sex: Male

DRUGS (6)
  1. ASPIRIN [ACETYLSALICYLIC ACID;ASCORBIC ACID] [Concomitant]
     Active Substance: ACETAMINOPHEN\ASCORBIC ACID
  2. AMLODIPINE [Concomitant]
     Active Substance: AMLODIPINE BESYLATE
  3. TACROLIMUS. [Concomitant]
     Active Substance: TACROLIMUS
     Indication: DERMATITIS ATOPIC
  4. DUPIXENT [Suspect]
     Active Substance: DUPILUMAB
     Indication: DERMATITIS ATOPIC
     Dosage: 300 MG, QOW
     Route: 058
     Dates: start: 202012
  5. ROSUVASTATIN. [Concomitant]
     Active Substance: ROSUVASTATIN
  6. CLOBETASOL [Concomitant]
     Active Substance: CLOBETASOL
     Dosage: 0.05 %,

REACTIONS (3)
  - Eczema [Not Recovered/Not Resolved]
  - Dry skin [Not Recovered/Not Resolved]
  - Dermatitis atopic [Not Recovered/Not Resolved]
